FAERS Safety Report 8983419 (Version 2)
Quarter: 2013Q1

REPORT INFORMATION
  Report Type: Spontaneous
  Country: LB (occurrence: LB)
  Receive Date: 20121224
  Receipt Date: 20130213
  Transmission Date: 20140127
  Serious: Yes (Hospitalization, Other)
  Sender: FDA-Public Use
  Company Number: LB-BRISTOL-MYERS SQUIBB COMPANY-17228107

PATIENT
  Age: 64 Year
  Sex: Male

DRUGS (5)
  1. APROVEL TABS [Suspect]
     Indication: HYPERTENSION
     Dosage: 27SEP2010 - JUN12: 300 MG
     Route: 048
     Dates: start: 20071008
  2. PLAVIX [Concomitant]
     Dates: start: 2007
  3. ASPIRIN [Concomitant]
     Dates: start: 2007
  4. XANAX [Concomitant]
  5. CLOPIDOGREL BISULFATE [Concomitant]

REACTIONS (3)
  - Pancreatitis [Recovered/Resolved]
  - Cerebral ischaemia [Unknown]
  - Hernia [Unknown]
